FAERS Safety Report 6158275-7 (Version None)
Quarter: 2009Q2

REPORT INFORMATION
  Report Type: 
  Country: None (occurrence: None)
  Receive Date: 20090417
  Receipt Date: 20090409
  Transmission Date: 20091009
  Serious: Yes (Hospitalization)
  Sender: FDA-Public Use
  Company Number: CH-ASTRAZENECA-2009PK01055

PATIENT
  Age: 53 Year
  Sex: Male

DRUGS (5)
  1. NEXIUM [Suspect]
     Route: 048
  2. CYCLOPHOSPHAMIDE [Interacting]
     Indication: RHEUMATOID VASCULITIS
     Dates: start: 20090108, end: 20090209
  3. ALDACTONE [Interacting]
     Route: 048
  4. NORVASC [Concomitant]
     Route: 048
  5. SPIRICORT [Concomitant]
     Route: 048

REACTIONS (8)
  - ASTHENIA [None]
  - BLOOD OSMOLARITY DECREASED [None]
  - CIRCULATORY COLLAPSE [None]
  - DRUG INTERACTION [None]
  - HYPONATRAEMIA [None]
  - INAPPROPRIATE ANTIDIURETIC HORMONE SECRETION [None]
  - NAUSEA [None]
  - VOMITING [None]
